FAERS Safety Report 4397750-2 (Version None)
Quarter: 2004Q3

REPORT INFORMATION
  Report Type: 
  Country: None (occurrence: None)
  Receive Date: 20040713
  Receipt Date: 20040629
  Transmission Date: 20050211
  Serious: Yes (Hospitalization, Other)
  Sender: FDA-Public Use
  Company Number: US-JNJFOC-20040700230

PATIENT
  Age: 60 Year
  Sex: Female

DRUGS (8)
  1. INFLIXIMAB (INFLIXIMAB, RECOMBINANT) LYOPHILIZED POWDER [Suspect]
     Indication: RHEUMATOID ARTHRITIS
     Dosage: INTRAVENOUS
     Route: 042
     Dates: start: 20011010, end: 20021120
  2. VIOXX [Concomitant]
  3. MULTIVITAMIN (MULTIVITAMINS) [Concomitant]
  4. IBUPROFEN [Concomitant]
  5. TOPROL (METOPROLOL SUCCINATE) [Concomitant]
  6. UNITETIC (PRIMOX PLUS) [Concomitant]
  7. ASPIRIN [Concomitant]
  8. MSM (METHYLSULFONAL) [Concomitant]

REACTIONS (4)
  - DIVERTICULITIS [None]
  - METHICILLIN-RESISTANT STAPHYLOCOCCAL AUREUS TEST POSITIVE [None]
  - POSTOPERATIVE ILEUS [None]
  - POSTOPERATIVE INFECTION [None]
